FAERS Safety Report 12625426 (Version 1)
Quarter: 2016Q3

REPORT INFORMATION
  Report Type: Spontaneous
  Country: US (occurrence: US)
  Receive Date: 20160805
  Receipt Date: 20160805
  Transmission Date: 20161109
  Serious: No
  Sender: FDA-Public Use
  Company Number: US-BAYER-2016-150695

PATIENT
  Age: 56 Year
  Sex: Female

DRUGS (2)
  1. CLIMARA PRO [Suspect]
     Active Substance: ESTRADIOL\LEVONORGESTREL
     Indication: HOT FLUSH
  2. CLIMARA PRO [Suspect]
     Active Substance: ESTRADIOL\LEVONORGESTREL
     Indication: MENOPAUSE
     Route: 062

REACTIONS (5)
  - Intentional product use issue [None]
  - Product physical issue [None]
  - Product adhesion issue [None]
  - Skin wound [Recovering/Resolving]
  - Device material issue [None]
